FAERS Safety Report 5142295-5 (Version None)
Quarter: 2006Q4

REPORT INFORMATION
  Report Type: 
  Country: None (occurrence: None)
  Receive Date: 20061102
  Receipt Date: 20060711
  Transmission Date: 20070319
  Serious: Yes (Hospitalization)
  Sender: FDA-Public Use
  Company Number: 2006AP03261

PATIENT
  Age: 805 Month
  Sex: Female
  Weight: 42 kg

DRUGS (1)
  1. ARIMIDEX [Suspect]
     Indication: BREAST CANCER
     Route: 048
     Dates: start: 20050216, end: 20051229

REACTIONS (6)
  - ACUTE CORONARY SYNDROME [None]
  - ANGINA PECTORIS [None]
  - ATRIAL HYPERTROPHY [None]
  - ELECTROCARDIOGRAM ABNORMAL [None]
  - PHARYNGEAL OEDEMA [None]
  - SUPRAVENTRICULAR EXTRASYSTOLES [None]
